FAERS Safety Report 5096404-7 (Version None)
Quarter: 2006Q3

REPORT INFORMATION
  Report Type: 
  Country: None (occurrence: None)
  Receive Date: 20060830
  Receipt Date: 20060821
  Transmission Date: 20061208
  Serious: Yes (Other)
  Sender: FDA-Public Use
  Company Number: GXKR2006GB05053

PATIENT
  Sex: Female

DRUGS (3)
  1. RANITIDINE HYDROCHLORIDE [Suspect]
     Indication: REFLUX GASTRITIS
     Dosage: 300 MG, QD, ORAL
     Route: 048
     Dates: start: 20060405, end: 20060409
  2. BENDROFLUAZIDE (BENDROFLUMETHIAZIDE) [Concomitant]
  3. PAROXETINE HYDROCHLORIDE [Concomitant]

REACTIONS (1)
  - ANASTOMOTIC ULCER [None]
